FAERS Safety Report 7586978-6 (Version None)
Quarter: 2011Q3

REPORT INFORMATION
  Report Type: 
  Country: None (occurrence: None)
  Receive Date: 20110701
  Receipt Date: 20110622
  Transmission Date: 20111222
  Serious: Yes (Other)
  Sender: FDA-Public Use
  Company Number: PHHY2011DE56114

PATIENT
  Age: 61 Year
  Sex: Female

DRUGS (2)
  1. ZOMETA [Suspect]
     Dates: start: 20040601, end: 20080121
  2. CORTISONE ACETATE [Concomitant]

REACTIONS (1)
  - OSTEONECROSIS OF JAW [None]
